FAERS Safety Report 15858629 (Version 1)
Quarter: 2019Q1

REPORT INFORMATION
  Report Type: Spontaneous
  Country: AU (occurrence: AU)
  Receive Date: 20190123
  Receipt Date: 20190123
  Transmission Date: 20190417
  Serious: Yes (Hospitalization)
  Sender: FDA-Public Use
  Company Number: AU-ELI_LILLY_AND_COMPANY-AU201901008358

PATIENT
  Age: 30 Year
  Sex: Male

DRUGS (6)
  1. CLOZARIL [Suspect]
     Active Substance: CLOZAPINE
     Indication: SCHIZOPHRENIA
     Dosage: 250 MG, UNKNOWN
     Route: 048
     Dates: start: 20080522
  2. HALOPERIDOL. [Suspect]
     Active Substance: HALOPERIDOL
     Indication: SCHIZOPHRENIA
     Dosage: 5 MG, BID
     Route: 065
  3. CLOZARIL [Suspect]
     Active Substance: CLOZAPINE
     Dosage: 250 MG, UNKNOWN
     Route: 048
     Dates: start: 20150621
  4. OLANZAPINE. [Suspect]
     Active Substance: OLANZAPINE
     Indication: SCHIZOPHRENIA
     Dosage: 10 MG, BID
     Route: 065
  5. CLOZARIL [Suspect]
     Active Substance: CLOZAPINE
     Dosage: 325 MG, UNKNOWN
     Route: 048
     Dates: start: 20150430
  6. HALOPERIDOL DECANOATE. [Suspect]
     Active Substance: HALOPERIDOL DECANOATE
     Indication: SCHIZOPHRENIA
     Dosage: 50 MG, EVERY FOUR WEEKS
     Route: 065

REACTIONS (15)
  - Blood sodium decreased [Unknown]
  - Globulins decreased [Unknown]
  - Blood bilirubin increased [Unknown]
  - Blood uric acid increased [Unknown]
  - Echocardiogram abnormal [Unknown]
  - Blood creatine decreased [Unknown]
  - Bilirubin conjugated increased [Unknown]
  - Blood glucose increased [Unknown]
  - Cardiac disorder [Unknown]
  - Psychiatric decompensation [Unknown]
  - Blood bicarbonate decreased [Unknown]
  - Cardiomyopathy [Unknown]
  - Blood lactate dehydrogenase increased [Unknown]
  - Aspartate aminotransferase increased [Unknown]
  - Tachycardia [Unknown]

NARRATIVE: CASE EVENT DATE: 2008
